FAERS Safety Report 7314984-5 (Version None)
Quarter: 2011Q1

REPORT INFORMATION
  Report Type: 
  Country: None (occurrence: None)
  Receive Date: 20110225
  Receipt Date: 20100322
  Transmission Date: 20110831
  Serious: No
  Sender: FDA-Public Use
  Company Number: US-MYLANLABS-2010S1003264

PATIENT
  Age: 15 Year
  Sex: Male

DRUGS (4)
  1. CLARAVIS [Suspect]
     Indication: ACNE
     Dates: start: 20091109
  2. AMNESTEEM [Suspect]
     Indication: ACNE
     Dates: end: 20100115
  3. FLONASE [Concomitant]
  4. FEXOFENADINE [Concomitant]

REACTIONS (3)
  - TEARFULNESS [None]
  - ANXIETY [None]
  - PSYCHIATRIC SYMPTOM [None]
